FAERS Safety Report 8614382-8 (Version None)
Quarter: 2012Q3

REPORT INFORMATION
  Report Type: 
  Country: None (occurrence: None)
  Receive Date: 20120823
  Receipt Date: 20120815
  Transmission Date: 20120928
  Serious: Yes (Other)
  Sender: FDA-Public Use
  Company Number: AU-SANOFI-AVENTIS-2012SA054487

PATIENT
  Age: 68 Year
  Sex: Male
  Weight: 95 kg

DRUGS (12)
  1. CABAZITAXEL [Suspect]
     Indication: PROSTATE CANCER METASTATIC
     Route: 042
     Dates: start: 20120214, end: 20120214
  2. PRISTIQ [Concomitant]
     Indication: PROPHYLAXIS
     Route: 048
     Dates: start: 20100501
  3. TEMAZEPAM [Concomitant]
     Indication: PROPHYLAXIS
     Route: 048
     Dates: start: 20120215
  4. CABAZITAXEL [Suspect]
     Route: 042
     Dates: start: 20120710, end: 20120710
  5. VENTOLIN [Concomitant]
     Indication: PROPHYLAXIS
     Route: 055
     Dates: start: 19920101
  6. HERBAL PREPARATION [Concomitant]
     Indication: PROPHYLAXIS
     Route: 048
     Dates: start: 20100601
  7. PERINDOPRIL ERBUMINE [Concomitant]
     Indication: PROPHYLAXIS
     Route: 048
     Dates: start: 20100801
  8. ZOLADEX [Concomitant]
     Indication: PROPHYLAXIS
     Route: 051
     Dates: start: 20070901
  9. CICLESONIDE [Concomitant]
     Indication: PROPHYLAXIS
     Route: 055
     Dates: start: 20090101
  10. PREDNISONE TAB [Suspect]
     Indication: PROSTATE CANCER METASTATIC
     Route: 048
     Dates: start: 20120214, end: 20120725
  11. GLUCOSAMINE [Concomitant]
     Indication: PROPHYLAXIS
     Route: 048
     Dates: start: 20120215
  12. MAGNESIUM [Concomitant]
     Indication: PROPHYLAXIS
     Route: 048
     Dates: start: 20100601

REACTIONS (1)
  - PULMONARY EMBOLISM [None]
